FAERS Safety Report 20692011 (Version 4)
Quarter: 2022Q4

REPORT INFORMATION
  Report Type: Report from Study
  Country: US (occurrence: US)
  Receive Date: 20220408
  Receipt Date: 20221010
  Transmission Date: 20230113
  Serious: Yes (Hospitalization, Other)
  Sender: FDA-Public Use
  Company Number: US-ABBVIE-22K-163-4350991-00

PATIENT
  Sex: Male
  Weight: 73.028 kg

DRUGS (18)
  1. HUMIRA [Suspect]
     Active Substance: ADALIMUMAB
     Indication: Crohn^s disease
     Route: 058
     Dates: start: 20181010
  2. HUMIRA [Suspect]
     Active Substance: ADALIMUMAB
     Dosage: CITRATE FREE
     Route: 058
  3. MEGESTROL [Concomitant]
     Active Substance: MEGESTROL
     Indication: Increased appetite
  4. Vitamin-12 [Concomitant]
     Indication: Gastrointestinal disorder therapy
  5. MODERNA COVID-19 VACCINE [Concomitant]
     Active Substance: ELASOMERAN
     Indication: COVID-19 immunisation
     Dosage: TIME INTERVAL: 1 TOTAL: 1ST DOSE, ONE IN ONCE
     Route: 030
     Dates: start: 20210301, end: 20210301
  6. MODERNA COVID-19 VACCINE [Concomitant]
     Active Substance: ELASOMERAN
     Indication: COVID-19 immunisation
     Dosage: TIME INTERVAL: 1 TOTAL: 2ND DOSE, ONE IN ONCE
     Route: 030
     Dates: start: 20210415, end: 20210415
  7. MODERNA COVID-19 VACCINE [Concomitant]
     Active Substance: ELASOMERAN
     Indication: COVID-19 immunisation
     Dosage: TIME INTERVAL: 1 TOTAL: 3RD BOOSTER DOSE, ONE IN ONCE
     Route: 030
     Dates: start: 20220115, end: 20220115
  8. Carbid/Leva [Concomitant]
     Indication: Parkinson^s disease
     Dosage: 25-100
  9. SELEGILINE [Concomitant]
     Active Substance: SELEGILINE
     Indication: Parkinson^s disease
  10. DONEPEZIL [Concomitant]
     Active Substance: DONEPEZIL
     Indication: Memory impairment
  11. AMANTADINE [Concomitant]
     Active Substance: AMANTADINE
     Indication: Parkinson^s disease
  12. Citracel [Concomitant]
     Indication: Supplementation therapy
     Dosage: 2/MEAL
  13. VITAMIN D NOS [Concomitant]
     Active Substance: VITAMIN D NOS
     Indication: Product used for unknown indication
     Dosage: 1/DAY
  14. ASPIRIN [Concomitant]
     Active Substance: ASPIRIN
     Indication: Anticoagulant therapy
  15. ESCITALOPRAM [Concomitant]
     Active Substance: ESCITALOPRAM OXALATE
     Indication: Antidepressant therapy
  16. Derifenacin [Concomitant]
     Indication: Product used for unknown indication
  17. ATORVASTATIN CALCIUM [Concomitant]
     Active Substance: ATORVASTATIN CALCIUM
     Indication: Cardiac disorder
  18. PREGABALIN [Concomitant]
     Active Substance: PREGABALIN
     Indication: Product used for unknown indication

REACTIONS (8)
  - Fall [Recovered/Resolved]
  - Transfusion [Recovered/Resolved]
  - Kidney contusion [Recovered/Resolved]
  - Lithiasis [Unknown]
  - Renal haemorrhage [Recovering/Resolving]
  - Spinal operation [Unknown]
  - Parkinson^s disease [Unknown]
  - Prostatic operation [Unknown]

NARRATIVE: CASE EVENT DATE: 20190101
